FAERS Safety Report 14945696 (Version 4)
Quarter: 2018Q4

REPORT INFORMATION
  Report Type: Spontaneous
  Country: DE (occurrence: DE)
  Receive Date: 20180529
  Receipt Date: 20181024
  Transmission Date: 20190204
  Serious: Yes (Hospitalization)
  Sender: FDA-Public Use
  Company Number: DE-AUROBINDO-AUR-APL-2018-027723

PATIENT
  Age: 76 Year
  Sex: Female
  Weight: 60 kg

DRUGS (10)
  1. CEFUROXIME FILM-COATED TABLET [Suspect]
     Active Substance: CEFUROXIME
     Indication: PRODUCT USED FOR UNKNOWN INDICATION
     Dosage: 500 MG, BID (1000 MG) (500 MG,2 IN 1 D) , TABLETTEN
     Route: 048
  2. ACETYLSALICYLSAEURE [Concomitant]
     Active Substance: ASPIRIN
     Indication: PRODUCT USED FOR UNKNOWN INDICATION
     Dosage: 100 MG, 1-0-0, TABLETTEN, 1 D
     Route: 048
  3. ACC AKUT [Concomitant]
     Active Substance: ACETYLCYSTEINE
     Indication: PRODUCT USED FOR UNKNOWN INDICATION
     Dosage: 200 MG, 1-0-1, TABLETTEN(400 MG ONCE A DYA)
     Route: 048
  4. ACC AKUT [Concomitant]
     Active Substance: ACETYLCYSTEINE
     Dosage: 200 MG, BID 400 MG (200 MG,2 IN 1 D)
     Route: 048
  5. RAMIPRIL. [Concomitant]
     Active Substance: RAMIPRIL
     Indication: PRODUCT USED FOR UNKNOWN INDICATION
     Dosage: 2.5 MG, 1-0-0, TABLETTEN, 1 D
     Route: 048
  6. LEVOTHYROXINE. [Concomitant]
     Active Substance: LEVOTHYROXINE
     Indication: PRODUCT USED FOR UNKNOWN INDICATION
     Dosage: 75 ?G, 1-0-0, TABLETTEN
     Route: 048
  7. LEVOTHYROXINE. [Concomitant]
     Active Substance: LEVOTHYROXINE
     Dosage: 75 MG, 1D
     Route: 048
  8. SALBUHEXAL [Concomitant]
     Active Substance: ALBUTEROL
     Indication: PRODUCT USED FOR UNKNOWN INDICATION
     Dosage: UNK, DOSIERAEROSOL
     Route: 048
  9. ATORVASTATIN [Concomitant]
     Active Substance: ATORVASTATIN
     Indication: PRODUCT USED FOR UNKNOWN INDICATION
     Dosage: 10 MG, 0-0-1, TABLETTEN, 1 D
     Route: 048
  10. CEFUROXIME FILM-COATED TABLET [Suspect]
     Active Substance: CEFUROXIME
     Dosage: 500 MG, BID (1000 MG) (500 MG,2 IN 1 D)
     Route: 048

REACTIONS (2)
  - Dyspnoea [Unknown]
  - Oedema mucosal [Unknown]

NARRATIVE: CASE EVENT DATE: 20170816
